FAERS Safety Report 13305481 (Version 4)
Quarter: 2017Q3

REPORT INFORMATION
  Report Type: Spontaneous
  Country: US (occurrence: US)
  Receive Date: 20170308
  Receipt Date: 20170802
  Transmission Date: 20171127
  Serious: Yes (Hospitalization, Other)
  Sender: FDA-Public Use
  Company Number: US-GLAXOSMITHKLINE-US2017GSK030652

PATIENT
  Age: 46 Year
  Sex: Female

DRUGS (5)
  1. FLOLAN [Suspect]
     Active Substance: EPOPROSTENOL SODIUM
     Dosage: 72 DF, CO
     Dates: start: 20100623
  2. COUMADIN [Concomitant]
     Active Substance: WARFARIN SODIUM
  3. FLOLAN [Suspect]
     Active Substance: EPOPROSTENOL SODIUM
     Indication: PULMONARY ARTERIAL HYPERTENSION
     Dosage: UNK
  4. SILDENAFIL CITRATE. [Concomitant]
     Active Substance: SILDENAFIL CITRATE
  5. FLOLAN [Suspect]
     Active Substance: EPOPROSTENOL SODIUM
     Indication: PULMONARY ARTERIAL HYPERTENSION
     Dosage: 72 DF, CO
     Route: 042
     Dates: start: 20100623

REACTIONS (3)
  - Complication associated with device [Unknown]
  - Gastroenteritis viral [Not Recovered/Not Resolved]
  - Central venous catheterisation [Unknown]

NARRATIVE: CASE EVENT DATE: 20170214
